FAERS Safety Report 9863288 (Version 3)
Quarter: 2014Q1

REPORT INFORMATION
  Report Type: Spontaneous
  Country: US (occurrence: US)
  Receive Date: 20140203
  Receipt Date: 20140314
  Transmission Date: 20141002
  Serious: No
  Sender: FDA-Public Use
  Company Number: US-PFIZER INC-2014027798

PATIENT
  Age: 83 Year
  Sex: Male
  Weight: 74.83 kg

DRUGS (3)
  1. ALAVERT D-12 HOUR ALLERGY + SINUS [Suspect]
     Indication: RHINORRHOEA
     Dosage: UNK, AS NEEDED
     Route: 048
  2. HUMIRA [Concomitant]
     Indication: RHEUMATOID ARTHRITIS
     Dosage: UNK
  3. COUMADIN [Concomitant]
     Indication: DEEP VEIN THROMBOSIS
     Dosage: UNK

REACTIONS (1)
  - Drug ineffective [Unknown]
